FAERS Safety Report 4300104-8 (Version None)
Quarter: 2004Q1

REPORT INFORMATION
  Report Type: 
  Country: None (occurrence: None)
  Receive Date: 20040219
  Receipt Date: 20040219
  Transmission Date: 20041129
  Serious: Yes (Hospitalization)
  Sender: FDA-Public Use
  Company Number: None

PATIENT
  Age: 55 Year
  Sex: Male
  Weight: 71 kg

DRUGS (6)
  1. PHRENALIN (325/50 MG) [Suspect]
     Indication: MIGRAINE
  2. CLONAZEPAM [Concomitant]
  3. THIAMINE [Concomitant]
  4. DILTIAZEM [Concomitant]
  5. DIVOLPROREX [Concomitant]
  6. RISPERIDONE [Concomitant]

REACTIONS (4)
  - FEELING DRUNK [None]
  - MEDICATION ERROR [None]
  - OVERDOSE [None]
  - SOMNOLENCE [None]
